FAERS Safety Report 16190198 (Version 1)
Quarter: 2019Q2

REPORT INFORMATION
  Report Type: Spontaneous
  Country: CN (occurrence: CN)
  Receive Date: 20190412
  Receipt Date: 20190412
  Transmission Date: 20190711
  Serious: Yes (Hospitalization, Other)
  Sender: FDA-Public Use
  Company Number: CN-PFIZER INC-2019151499

PATIENT
  Age: 47 Year
  Sex: Female
  Weight: 46.5 kg

DRUGS (3)
  1. PHARMORUBICIN [Suspect]
     Active Substance: EPIRUBICIN
     Indication: INVASIVE DUCTAL BREAST CARCINOMA
     Dosage: 125 MG, 1X/DAY
     Route: 041
     Dates: start: 20190312, end: 20190312
  2. SODIUM CHLORIDE. [Concomitant]
     Active Substance: SODIUM CHLORIDE
     Indication: VEHICLE SOLUTION USE
     Dosage: 250 ML, 1X/DAY
     Route: 041
     Dates: start: 20190312, end: 20190312
  3. ENDOXAN [CYCLOPHOSPHAMIDE] [Suspect]
     Active Substance: CYCLOPHOSPHAMIDE
     Indication: INVASIVE DUCTAL BREAST CARCINOMA
     Dosage: 800 MG, 1X/DAY
     Route: 041
     Dates: start: 20190312, end: 20190312

REACTIONS (5)
  - Fatigue [Unknown]
  - Granulocytopenia [Recovered/Resolved]
  - Mental fatigue [Unknown]
  - Bone marrow failure [Unknown]
  - Dizziness [Unknown]

NARRATIVE: CASE EVENT DATE: 20190320
